FAERS Safety Report 17834092 (Version 23)
Quarter: 2023Q4

REPORT INFORMATION
  Report Type: Report from Study
  Country: US (occurrence: US)
  Receive Date: 20200528
  Receipt Date: 20231127
  Transmission Date: 20240110
  Serious: Yes (Other)
  Sender: FDA-Public Use
  Company Number: US-SHIRE-US202017552

PATIENT
  Sex: Male
  Weight: 66 kg

DRUGS (53)
  1. HUMAN IMMUNOGLOBULIN G [Suspect]
     Active Substance: HUMAN IMMUNOGLOBULIN G
     Indication: Immunodeficiency common variable
     Dosage: 10 GRAM, 1/WEEK
     Route: 058
     Dates: start: 20190826
  2. HUMAN IMMUNOGLOBULIN G [Suspect]
     Active Substance: HUMAN IMMUNOGLOBULIN G
     Dosage: 16 GRAM, 1/WEEK
     Route: 058
     Dates: start: 20190827
  3. HUMAN IMMUNOGLOBULIN G [Suspect]
     Active Substance: HUMAN IMMUNOGLOBULIN G
     Dosage: 12 GRAM, 1/WEEK
     Route: 058
  4. HUMAN IMMUNOGLOBULIN G [Suspect]
     Active Substance: HUMAN IMMUNOGLOBULIN G
     Dosage: 32 GRAM, 1/WEEK
     Route: 058
  5. HUMAN IMMUNOGLOBULIN G [Suspect]
     Active Substance: HUMAN IMMUNOGLOBULIN G
     Dosage: 32 GRAM, Q2WEEKS
     Route: 058
  6. HUMAN IMMUNOGLOBULIN G [Suspect]
     Active Substance: HUMAN IMMUNOGLOBULIN G
     Dosage: 14 GRAM, 1/WEEK
     Route: 058
  7. CVS COENZYME Q 10 [Concomitant]
     Indication: Product used for unknown indication
     Dosage: UNK
     Route: 065
  8. BORON [Concomitant]
     Active Substance: BORON
     Indication: Product used for unknown indication
     Dosage: UNK
     Route: 065
  9. DIPHENHYDRAMINE HYDROCHLORIDE [Concomitant]
     Active Substance: DIPHENHYDRAMINE HYDROCHLORIDE
     Dosage: UNK
     Route: 065
  10. SERMORELIN ACETATE [Concomitant]
     Active Substance: SERMORELIN ACETATE
     Dosage: UNK
  11. NYSTATIN [Concomitant]
     Active Substance: NYSTATIN
     Indication: Product used for unknown indication
     Dosage: UNK
     Route: 065
  12. VITAMIN A [Concomitant]
     Active Substance: VITAMIN A
     Indication: Product used for unknown indication
     Dosage: UNK
     Route: 065
  13. EPINEPHRINE [Concomitant]
     Active Substance: EPINEPHRINE
     Indication: Product used for unknown indication
     Dosage: UNK
     Route: 065
  14. AMPHOTERICIN B [Concomitant]
     Active Substance: AMPHOTERICIN B
     Indication: Product used for unknown indication
     Dosage: UNK
     Route: 065
  15. HERBALS\SAW PALMETTO [Concomitant]
     Active Substance: HERBALS\SAW PALMETTO
     Indication: Product used for unknown indication
     Dosage: UNK
     Route: 065
  16. QUERCETIN DIHYDRATE [Concomitant]
     Active Substance: QUERCETIN DIHYDRATE
     Indication: Product used for unknown indication
     Dosage: UNK
     Route: 065
  17. VITAMIN D3 [Concomitant]
     Active Substance: CHOLECALCIFEROL
     Indication: Product used for unknown indication
     Dosage: UNK
     Route: 065
  18. PRASTERONE [Concomitant]
     Active Substance: PRASTERONE
     Indication: Product used for unknown indication
     Dosage: UNK
     Route: 065
  19. IODINE [Concomitant]
     Active Substance: IODINE
     Indication: Product used for unknown indication
     Dosage: UNK
     Route: 065
  20. ROYAL JELLY [Concomitant]
     Active Substance: ROYAL JELLY
     Indication: Product used for unknown indication
     Dosage: UNK
     Route: 065
  21. BIOTIN [Concomitant]
     Active Substance: BIOTIN
     Indication: Product used for unknown indication
     Dosage: UNK
     Route: 065
  22. MAGNESIUM [Concomitant]
     Active Substance: MAGNESIUM
     Indication: Product used for unknown indication
     Dosage: UNK
     Route: 065
  23. PHOSPHATIDYL SERINE [Concomitant]
     Active Substance: PHOSPHATIDYL SERINE
     Indication: Product used for unknown indication
     Dosage: UNK
     Route: 065
  24. ACETAMINOPHEN [Concomitant]
     Active Substance: ACETAMINOPHEN
     Indication: Product used for unknown indication
     Dosage: UNK
     Route: 065
  25. PREGNENOLONE [Concomitant]
     Active Substance: PREGNENOLONE
     Indication: Product used for unknown indication
     Dosage: UNK
     Route: 065
  26. MOLYBDENUM [Concomitant]
     Active Substance: MOLYBDENUM
     Indication: Product used for unknown indication
     Dosage: UNK
     Route: 065
  27. GLUCOSAMINE AND CHONDROITIN WITH MSM [Concomitant]
     Indication: Product used for unknown indication
     Dosage: UNK
     Route: 065
  28. ALPHA LIPOIC ACID [Concomitant]
     Active Substance: .ALPHA.-LIPOIC ACID
     Indication: Product used for unknown indication
     Dosage: UNK
     Route: 065
  29. VITAMIN E [Concomitant]
     Active Substance: .ALPHA.-TOCOPHEROL
     Indication: Product used for unknown indication
     Dosage: UNK
     Route: 065
  30. NICOTINAMIDE [Concomitant]
     Active Substance: NIACINAMIDE
     Indication: Product used for unknown indication
     Dosage: UNK
     Route: 065
  31. ADENINE [Concomitant]
     Active Substance: ADENINE
     Indication: Product used for unknown indication
     Dosage: UNK
     Route: 065
  32. ZINC [Concomitant]
     Active Substance: PYRITHIONE ZINC\ZINC\ZINC CHLORIDE
     Indication: Product used for unknown indication
     Dosage: UNK
     Route: 065
  33. CROMOLYN SODIUM [Concomitant]
     Active Substance: CROMOLYN SODIUM
     Indication: Product used for unknown indication
     Dosage: UNK
     Route: 065
  34. CYTOMEL [Concomitant]
     Active Substance: LIOTHYRONINE SODIUM
     Indication: Product used for unknown indication
     Dosage: UNK
     Route: 065
  35. SPORANOX [Concomitant]
     Active Substance: ITRACONAZOLE
     Indication: Product used for unknown indication
     Dosage: UNK
     Route: 065
  36. VITAMIN C [Concomitant]
     Active Substance: ASCORBIC ACID
     Dosage: UNK
     Route: 065
  37. NP THYROID [Concomitant]
     Active Substance: LEVOTHYROXINE\LIOTHYRONINE
     Indication: Product used for unknown indication
     Dosage: UNK
     Route: 065
  38. ORNITHINE [Concomitant]
     Active Substance: ORNITHINE
     Indication: Product used for unknown indication
     Dosage: UNK
     Route: 065
  39. TESTOSTERONE CYPIONATE [Concomitant]
     Active Substance: TESTOSTERONE CYPIONATE
     Indication: Product used for unknown indication
     Dosage: UNK
     Route: 065
  40. GLUTATHIONE [Concomitant]
     Active Substance: GLUTATHIONE
     Indication: Product used for unknown indication
     Dosage: UNK
     Route: 065
  41. EPIGALLOCATECHIN GALLATE [Concomitant]
     Active Substance: EPIGALLOCATECHIN GALLATE
     Indication: Product used for unknown indication
     Dosage: UNK
     Route: 065
  42. DIETARY SUPPLEMENT\HERBALS\MILK THISTLE [Concomitant]
     Active Substance: MILK THISTLE
     Indication: Product used for unknown indication
     Dosage: UNK
     Route: 065
  43. LIDOCAINE [Concomitant]
     Active Substance: LIDOCAINE
     Dosage: UNK
     Route: 065
  44. L-LYSINE ACETATE [Concomitant]
     Indication: Product used for unknown indication
     Dosage: UNK
     Route: 065
  45. PANTETHINE [Concomitant]
     Active Substance: PANTETHINE
     Indication: Product used for unknown indication
     Dosage: UNK
     Route: 065
  46. DIPHENHYDRAMINE [Concomitant]
     Active Substance: DIPHENHYDRAMINE
     Indication: Product used for unknown indication
     Dosage: UNK
     Route: 065
  47. SERMORELIN [Concomitant]
     Active Substance: SERMORELIN
     Dosage: UNK
     Route: 065
  48. LIDOCAINE [Concomitant]
     Active Substance: LIDOCAINE
     Indication: Product used for unknown indication
     Dosage: UNK
     Route: 065
  49. Wobenzym [Concomitant]
     Indication: Product used for unknown indication
     Dosage: UNK
     Route: 065
  50. THYMOSIN [Concomitant]
     Active Substance: THYMOSIN
     Indication: Product used for unknown indication
     Dosage: UNK
     Route: 065
  51. .BETA.-SITOSTEROL [Concomitant]
     Active Substance: .BETA.-SITOSTEROL
     Indication: Product used for unknown indication
     Dosage: UNK
     Route: 065
  52. KETOTIFEN [Concomitant]
     Active Substance: KETOTIFEN
     Indication: Product used for unknown indication
     Dosage: UNK
     Route: 065
  53. THYMALFASIN [Concomitant]
     Active Substance: THYMALFASIN
     Dosage: UNK
     Route: 065

REACTIONS (42)
  - Osteomyelitis [Unknown]
  - Chlamydial infection [Unknown]
  - Pneumonia mycoplasmal [Unknown]
  - Lyme disease [Unknown]
  - Neutropenia [Unknown]
  - Skin discolouration [Unknown]
  - Hair colour changes [Unknown]
  - Weight decreased [Unknown]
  - Injury [Unknown]
  - Gastrointestinal disorder [Unknown]
  - Tooth infection [Unknown]
  - Lung disorder [Unknown]
  - Weight fluctuation [Unknown]
  - Infection [Unknown]
  - Illness [Unknown]
  - Parasite stool test positive [Unknown]
  - Epstein-Barr virus infection [Unknown]
  - Candida infection [Unknown]
  - Infusion site irritation [Unknown]
  - Infusion site scar [Unknown]
  - Infusion site infection [Unknown]
  - Fluid retention [Unknown]
  - Renal disorder [Unknown]
  - Peripheral swelling [Unknown]
  - Post-traumatic stress disorder [Unknown]
  - Injection site scar [Unknown]
  - Scar [Unknown]
  - Therapy non-responder [Unknown]
  - Liquid product physical issue [Unknown]
  - Infusion site mass [Unknown]
  - Infusion site nodule [Unknown]
  - Chest pain [Unknown]
  - Somnolence [Unknown]
  - Abdominal distension [Unknown]
  - Rash [Unknown]
  - Infusion site pain [Unknown]
  - Infusion site erythema [Unknown]
  - Malaise [Unknown]
  - Product dose omission issue [Unknown]
  - Incorrect drug administration rate [Unknown]
  - Inappropriate schedule of product administration [Unknown]
  - Product administration error [Unknown]
